FAERS Safety Report 8779069 (Version 1)
Quarter: 2012Q4

REPORT INFORMATION
  Report Type: 
  Country: US (occurrence: US)
  Receive Date: 20120912
  Receipt Date: 20120912
  Transmission Date: 20130627
  Serious: Yes (Other)
  Sender: FDA-Public Use
  Company Number: US-PFIZER INC-2012221102

PATIENT
  Sex: Male

DRUGS (3)
  1. DILANTIN [Suspect]
     Dosage: UNK
  2. TESTOSTERONE CIPIONATE [Suspect]
     Dosage: UNK
  3. ASPIRIN [Concomitant]
     Indication: THROMBOSIS

REACTIONS (2)
  - Drug dependence [Unknown]
  - Osteoporosis [Unknown]
